FAERS Safety Report 16259234 (Version 1)
Quarter: 2019Q2

REPORT INFORMATION
  Report Type: Spontaneous
  Country: SE (occurrence: SE)
  Receive Date: 20190501
  Receipt Date: 20190501
  Transmission Date: 20190711
  Serious: Yes (Hospitalization)
  Sender: FDA-Public Use
  Company Number: SE-TEVA-2019-SE-1043390

PATIENT
  Sex: Female

DRUGS (1)
  1. LOPERAMIDE [Suspect]
     Active Substance: LOPERAMIDE
     Route: 048
     Dates: end: 20160105

REACTIONS (5)
  - Miosis [Unknown]
  - Oxygen saturation decreased [Unknown]
  - Overdose [Unknown]
  - Musculoskeletal stiffness [Unknown]
  - Snoring [Unknown]

NARRATIVE: CASE EVENT DATE: 201601
